FAERS Safety Report 9157947 (Version 1)
Quarter: 2013Q1

REPORT INFORMATION
  Report Type: Spontaneous
  Country: JP (occurrence: None)
  Receive Date: 20130213
  Receipt Date: 20130213
  Transmission Date: 20140127
  Serious: Yes (Other)
  Sender: FDA-Public Use
  Company Number: NSR_01016_2013

PATIENT
  Age: 32 Year
  Sex: Male

DRUGS (1)
  1. ALLOPURINOL [Suspect]
     Indication: PRODUCT USED FOR UNKNOWN INDICATION
     Dosage: DF, UNKNOWN

REACTIONS (2)
  - Drug reaction with eosinophilia and systemic symptoms [None]
  - Drug reaction with eosinophilia and systemic symptoms [None]
